FAERS Safety Report 9131681 (Version 1)
Quarter: 2013Q1

REPORT INFORMATION
  Report Type: Report from Study
  Country: US (occurrence: US)
  Receive Date: 20130301
  Receipt Date: 20130301
  Transmission Date: 20140127
  Serious: No
  Sender: FDA-Public Use
  Company Number: US-MYLANLABS-2012S1010807

PATIENT
  Age: 50 Year
  Sex: Female

DRUGS (4)
  1. CLARAVIS [Suspect]
     Indication: DERMATILLOMANIA
     Route: 048
     Dates: start: 20120208
  2. CLARAVIS [Suspect]
     Indication: LICHEN PLANUS
     Route: 048
     Dates: start: 20120208
  3. AMNESTEEM CAPSULES [Suspect]
     Indication: DERMATILLOMANIA
     Route: 048
     Dates: end: 20120521
  4. AMNESTEEM CAPSULES [Suspect]
     Indication: LICHEN PLANUS
     Route: 048
     Dates: end: 20120521

REACTIONS (1)
  - Drug ineffective [Not Recovered/Not Resolved]
